FAERS Safety Report 16193217 (Version 1)
Quarter: 2019Q2

REPORT INFORMATION
  Report Type: Other
  Country: ES (occurrence: ES)
  Receive Date: 20190413
  Receipt Date: 20190413
  Transmission Date: 20190711
  Serious: Yes (Life-Threatening, Hospitalization, Disabling)
  Sender: FDA-Public Use
  Company Number: ES-CELLTRION INC.-2019ES020287

PATIENT

DRUGS (1)
  1. INFLIXIMAB (UNKNOWN) [Suspect]
     Active Substance: INFLIXIMAB
     Indication: COLITIS ULCERATIVE
     Dosage: 1 DF, SE ADMINISTRARON 2 DOSIS DE INFLIXIMAB. LA PRIMERA EL DIA 20-12-18: 600 MG. LA SEGUNDA EL  DIA
     Route: 042
     Dates: start: 20181220, end: 20190103

REACTIONS (3)
  - Acute interstitial pneumonitis [Recovering/Resolving]
  - Acute respiratory failure [Recovering/Resolving]
  - Product use issue [Unknown]

NARRATIVE: CASE EVENT DATE: 20190121
